FAERS Safety Report 8425077-8 (Version None)
Quarter: 2012Q2

REPORT INFORMATION
  Report Type: 
  Country: None (occurrence: None)
  Receive Date: 20120605
  Receipt Date: 20120605
  Transmission Date: 20120825
  Serious: Yes (Other)
  Sender: FDA-Public Use
  Company Number: None

PATIENT
  Sex: Female

DRUGS (2)
  1. BUSPIRONE HCL [Suspect]
     Indication: ANXIETY
     Dosage: BUSPIRONE 10MG 1 BID PM PO
     Route: 048
     Dates: start: 20120523
  2. CITALOPRAM HYDROBROMIDE [Suspect]
     Indication: ANXIETY
     Dosage: CITALOPRAM 20MG 1 QD PO
     Route: 048
     Dates: start: 20120523

REACTIONS (5)
  - SEROTONIN SYNDROME [None]
  - DIARRHOEA [None]
  - HEART RATE INCREASED [None]
  - NAUSEA [None]
  - DIZZINESS [None]
